FAERS Safety Report 5940273-7 (Version None)
Quarter: 2008Q4

REPORT INFORMATION
  Report Type: 
  Country: None (occurrence: None)
  Receive Date: 20081030
  Receipt Date: 20081015
  Transmission Date: 20090506
  Serious: Yes (Death)
  Sender: FDA-Public Use
  Company Number: 2008AL011378

PATIENT
  Age: 70 Year
  Sex: Female

DRUGS (3)
  1. EPIRUBICIN HCL [Suspect]
     Dosage: IV
     Route: 042
     Dates: start: 20080917, end: 20080926
  2. CISPLATIN [Concomitant]
  3. CAPECITABINE [Concomitant]

REACTIONS (1)
  - NEUTROPENIC SEPSIS [None]
